FAERS Safety Report 25125050 (Version 1)
Quarter: 2025Q1

REPORT INFORMATION
  Report Type: Spontaneous
  Country: CN (occurrence: CN)
  Receive Date: 20250326
  Receipt Date: 20250326
  Transmission Date: 20250409
  Serious: Yes (Hospitalization)
  Sender: PAREXEL
  Company Number: CN-SHANGHAI JUNSHI BIOSCIENCES CO., LTD.-CN2025013461

PATIENT

DRUGS (9)
  1. TORIPALIMAB [Suspect]
     Active Substance: TORIPALIMAB
     Indication: Undifferentiated nasopharyngeal carcinoma
     Route: 041
     Dates: start: 20250216, end: 20250216
  2. TORIPALIMAB [Suspect]
     Active Substance: TORIPALIMAB
     Indication: Metastases to lymph nodes
  3. PACLITAXEL [Suspect]
     Active Substance: PACLITAXEL
     Indication: Undifferentiated nasopharyngeal carcinoma
     Route: 041
     Dates: start: 20250217, end: 20250217
  4. PACLITAXEL [Suspect]
     Active Substance: PACLITAXEL
     Indication: Metastases to lymph nodes
  5. CISPLATIN [Suspect]
     Active Substance: CISPLATIN
     Indication: Undifferentiated nasopharyngeal carcinoma
     Dosage: 35 MG (D1-D3, QD)
     Route: 041
     Dates: start: 20250217, end: 20250217
  6. CISPLATIN [Suspect]
     Active Substance: CISPLATIN
     Indication: Metastases to lymph nodes
  7. SODIUM CHLORIDE [Concomitant]
     Active Substance: SODIUM CHLORIDE
     Indication: Medication dilution
     Route: 041
     Dates: start: 20250216, end: 20250216
  8. SODIUM CHLORIDE [Concomitant]
     Active Substance: SODIUM CHLORIDE
     Indication: Medication dilution
     Dosage: 250 ML (D1-D3, QD)
     Route: 041
     Dates: start: 20250217, end: 20250219
  9. SODIUM CHLORIDE [Concomitant]
     Active Substance: SODIUM CHLORIDE
     Indication: Medication dilution
     Route: 041
     Dates: start: 20250217, end: 20250217

REACTIONS (1)
  - Myelosuppression [Recovering/Resolving]

NARRATIVE: CASE EVENT DATE: 20250305
